FAERS Safety Report 16151120 (Version 3)
Quarter: 2019Q2

REPORT INFORMATION
  Report Type: Spontaneous
  Country: US (occurrence: US)
  Receive Date: 20190402
  Receipt Date: 20190418
  Transmission Date: 20190711
  Serious: No
  Sender: FDA-Public Use
  Company Number: US-UNITED THERAPEUTICS-UNT-2019-005788

PATIENT
  Age: 82 Year
  Sex: Female
  Weight: 61.22 kg

DRUGS (2)
  1. AMLODIPINE [Concomitant]
     Active Substance: AMLODIPINE BESYLATE
     Indication: PRODUCT USED FOR UNKNOWN INDICATION
     Route: 065
  2. TYVASO [Suspect]
     Active Substance: TREPROSTINIL
     Indication: PULMONARY ARTERIAL HYPERTENSION
     Dosage: 18-54 ?G, QID
     Dates: start: 20130930

REACTIONS (8)
  - Balance disorder [Unknown]
  - Visual impairment [Unknown]
  - Peripheral swelling [Unknown]
  - Head injury [Unknown]
  - Memory impairment [Unknown]
  - Product dose omission [Unknown]
  - Fall [Recovered/Resolved with Sequelae]
  - Hypoaesthesia [Unknown]

NARRATIVE: CASE EVENT DATE: 201903
